FAERS Safety Report 6557359-9 (Version None)
Quarter: 2010Q1

REPORT INFORMATION
  Report Type: 
  Country: None (occurrence: None)
  Receive Date: 20100127
  Receipt Date: 20100127
  Transmission Date: 20100710
  Serious: Yes (Other)
  Sender: FDA-Public Use
  Company Number: None

PATIENT
  Age: 47 Year
  Sex: Female

DRUGS (1)
  1. DOCETAXEL [Suspect]
     Dosage: 117MG UNKNOWN IV
     Route: 042
     Dates: start: 20100111, end: 20100111

REACTIONS (5)
  - BLOOD PRESSURE INCREASED [None]
  - BONE PAIN [None]
  - CRYING [None]
  - DRUG HYPERSENSITIVITY [None]
  - PAIN [None]
